FAERS Safety Report 12255146 (Version 4)
Quarter: 2016Q2

REPORT INFORMATION
  Report Type: Spontaneous
  Country: NZ (occurrence: NZ)
  Receive Date: 20160411
  Receipt Date: 20160525
  Transmission Date: 20160815
  Serious: Yes (Other)
  Sender: FDA-Public Use
  Company Number: NZ-ROCHE-1737730

PATIENT
  Age: 47 Year
  Sex: Male

DRUGS (16)
  1. MABTHERA [Suspect]
     Active Substance: RITUXIMAB
     Indication: AUTOIMMUNE HAEMOLYTIC ANAEMIA
     Route: 065
     Dates: start: 201010
  2. CELLCEPT [Suspect]
     Active Substance: MYCOPHENOLATE MOFETIL\MYCOPHENOLATE MOFETIL HYDROCHLORIDE
     Route: 065
     Dates: start: 201501
  3. PLASMA EXCHANGE [Concomitant]
     Active Substance: ALBUMIN HUMAN
  4. CELLCEPT [Suspect]
     Active Substance: MYCOPHENOLATE MOFETIL\MYCOPHENOLATE MOFETIL HYDROCHLORIDE
     Indication: AUTOIMMUNE HAEMOLYTIC ANAEMIA
     Route: 065
     Dates: start: 201409, end: 201501
  5. PREDNISONE. [Concomitant]
     Active Substance: PREDNISONE
     Dosage: TRANSFUSED 4 UNITS
     Route: 065
  6. PREDNISONE. [Concomitant]
     Active Substance: PREDNISONE
     Dosage: INCREASED
     Route: 065
     Dates: end: 201104
  7. CYCLOPHOSPHAMIDE. [Concomitant]
     Active Substance: CYCLOPHOSPHAMIDE
     Dosage: 50MG/100MG ALTERNATE DAYS
     Route: 048
  8. IVIG [Concomitant]
     Active Substance: HUMAN IMMUNOGLOBULIN G
  9. STEM CELL TRANSPLANT [Concomitant]
     Active Substance: ALLOGENIC STEM CELL
  10. CYCLOPHOSPHAMIDE. [Concomitant]
     Active Substance: CYCLOPHOSPHAMIDE
     Route: 065
  11. AZATHIOPRINE. [Concomitant]
     Active Substance: AZATHIOPRINE
  12. PREDNISONE. [Concomitant]
     Active Substance: PREDNISONE
     Dosage: REDUCED
     Route: 065
  13. CYCLOSPORIN [Concomitant]
     Active Substance: CYCLOSPORINE
     Route: 065
  14. PREDNISONE. [Concomitant]
     Active Substance: PREDNISONE
     Dosage: 15-20MG
     Route: 065
  15. DANAZOL. [Concomitant]
     Active Substance: DANAZOL
  16. CYCLOPHOSPHAMIDE. [Concomitant]
     Active Substance: CYCLOPHOSPHAMIDE
     Dosage: 1200MG/M2 X 4
     Route: 065

REACTIONS (11)
  - Anaemia [Not Recovered/Not Resolved]
  - Depression [Unknown]
  - Anxiety [Unknown]
  - Tremor [Unknown]
  - Gastrointestinal haemorrhage [Unknown]
  - Infection [Unknown]
  - Visual impairment [Unknown]
  - Pulmonary embolism [Unknown]
  - Off label use [Unknown]
  - Haemolysis [Recovered/Resolved]
  - Cystitis haemorrhagic [Unknown]

NARRATIVE: CASE EVENT DATE: 201103
